FAERS Safety Report 8012690-5 (Version None)
Quarter: 2011Q4

REPORT INFORMATION
  Report Type: 
  Country: None (occurrence: None)
  Receive Date: 20111223
  Receipt Date: 20111223
  Transmission Date: 20120403
  Serious: Yes (Other)
  Sender: FDA-Public Use
  Company Number: None

PATIENT
  Age: 71 Year
  Sex: Male

DRUGS (10)
  1. ISONISAID [Concomitant]
  2. HYDROMORPHONE HCL [Concomitant]
  3. PYRIDOXINE HCL [Concomitant]
  4. LISINOPRIL [Concomitant]
  5. REVLIMID [Suspect]
     Indication: MULTIPLE MYELOMA
     Dosage: REVLIMID 10 MG DAILY X21D/28D ORALLY
     Route: 048
  6. FENTANYL [Concomitant]
  7. SIMVASTATIN [Concomitant]
  8. ALPRAZOLAM [Concomitant]
  9. CARVEDILOL [Concomitant]
  10. CYANOCOBALAMIN [Concomitant]

REACTIONS (2)
  - DIZZINESS [None]
  - CHEST PAIN [None]
